FAERS Safety Report 9638429 (Version 4)
Quarter: 2014Q1

REPORT INFORMATION
  Report Type: Report from Study
  Country: JP (occurrence: JP)
  Receive Date: 20131022
  Receipt Date: 20140326
  Transmission Date: 20141002
  Serious: Yes (Hospitalization)
  Sender: FDA-Public Use
  Company Number: JP-PFIZER INC-2013297884

PATIENT
  Age: 32 Year
  Sex: Male
  Weight: 57.2 kg

DRUGS (20)
  1. SUNITINIB MALATE [Suspect]
     Indication: PANCREATIC NEUROENDOCRINE TUMOUR
     Dosage: 37.5 MG, 1X/DAY
     Route: 048
     Dates: start: 20130117, end: 20130209
  2. SUNITINIB MALATE [Suspect]
     Dosage: 25 MG, 1X/DAY
     Route: 048
     Dates: start: 20130307, end: 20130619
  3. P GUARD [Suspect]
     Dosage: UNK
     Route: 048
     Dates: start: 20130328
  4. MAGMITT [Concomitant]
     Dosage: UNK
     Route: 048
  5. TAKEPRON [Concomitant]
     Dosage: UNK
     Route: 048
  6. DEPAS [Concomitant]
     Dosage: UNK
     Route: 048
  7. ARTANE [Concomitant]
     Dosage: UNK
     Route: 048
  8. RIVOTRIL [Concomitant]
     Dosage: UNK
     Route: 048
  9. LYRICA [Concomitant]
     Dosage: UNK MG, UNK
     Route: 048
  10. CALONAL [Concomitant]
     Dosage: UNK
     Route: 048
  11. PANTOSIN [Concomitant]
     Dosage: UNK
     Route: 048
  12. LOXOPROFEN [Concomitant]
     Dosage: UNK
     Route: 048
     Dates: end: 20130311
  13. URSO [Concomitant]
     Dosage: UNK
     Route: 048
  14. ROHYPNOL [Concomitant]
     Dosage: UNK
     Route: 048
     Dates: end: 20130312
  15. ALESION [Concomitant]
     Dosage: UNK
     Route: 048
     Dates: end: 20130319
  16. ATARAX-P [Concomitant]
     Dosage: UNK
     Route: 048
     Dates: start: 20130129, end: 20130325
  17. DUROTEP [Concomitant]
     Dosage: UNK
     Route: 062
     Dates: end: 20130128
  18. OXYCONTIN [Concomitant]
     Dosage: UNK
     Route: 048
     Dates: end: 20130210
  19. OXINORM [Concomitant]
     Dosage: UNK
     Route: 048
     Dates: end: 20130205
  20. KETALAR [Concomitant]
     Dosage: UNK
     Route: 041
     Dates: end: 20130128

REACTIONS (7)
  - Pyrexia [Recovered/Resolved]
  - Bacteraemia [Recovered/Resolved]
  - Pyrexia [Recovered/Resolved]
  - Sepsis [Recovered/Resolved]
  - Diplopia [Recovering/Resolving]
  - Cancer pain [Recovering/Resolving]
  - Cancer pain [Recovering/Resolving]
